FAERS Safety Report 6046734-7 (Version None)
Quarter: 2009Q1

REPORT INFORMATION
  Report Type: 
  Country: None (occurrence: None)
  Receive Date: 20090122
  Receipt Date: 20081210
  Transmission Date: 20090719
  Serious: Yes (Other)
  Sender: FDA-Public Use
  Company Number: JP-PFIZER INC-2008155795

PATIENT

DRUGS (3)
  1. VORICONAZOLE [Suspect]
     Indication: ASPERGILLOSIS
     Dosage: 6 MG/KG, 2X/DAY
  2. VORICONAZOLE [Suspect]
     Dosage: 4 MG/KG, 2X/DAY
  3. VORICONAZOLE [Suspect]
     Dosage: 2 MG, 2X/DAY

REACTIONS (3)
  - ILEUS PARALYTIC [None]
  - MYOSITIS [None]
  - NEUROPATHY PERIPHERAL [None]
